FAERS Safety Report 11593567 (Version 1)
Quarter: 2015Q4

REPORT INFORMATION
  Report Type: Spontaneous
  Country: None (occurrence: None)
  Receive Date: 20151002
  Receipt Date: 20151002
  Transmission Date: 20160304
  Serious: Yes (Other)
  Sender: FDA-Public Use
  Company Number: None

PATIENT
  Age: 33 Year
  Sex: Female
  Weight: 84.82 kg

DRUGS (8)
  1. DEXTROAMPHETAMINE SULFATE 10MG MALLINKRODT [Suspect]
     Active Substance: DEXTROAMPHETAMINE SULFATE
     Indication: ATTENTION DEFICIT/HYPERACTIVITY DISORDER
     Dosage: 1.5
     Route: 048
     Dates: start: 20150930, end: 20151001
  2. CURCUMIN [Concomitant]
     Active Substance: CURCUMIN
  3. VITAMIN D [Concomitant]
     Active Substance: CHOLECALCIFEROL
  4. MAGNESIUM [Concomitant]
     Active Substance: MAGNESIUM
  5. FISH OIL [Concomitant]
     Active Substance: FISH OIL
  6. PROBIOTIC [Concomitant]
     Active Substance: PROBIOTICS NOS
  7. ARMOUR THYROID - 60MG [Concomitant]
  8. COQ10 [Concomitant]
     Active Substance: UBIDECARENONE

REACTIONS (5)
  - Product quality issue [None]
  - Product substitution issue [None]
  - Incorrect dose administered [None]
  - Panic attack [None]
  - Anxiety [None]

NARRATIVE: CASE EVENT DATE: 20150930
